FAERS Safety Report 23171259 (Version 1)
Quarter: 2023Q4

REPORT INFORMATION
  Report Type: Spontaneous
  Country: US (occurrence: US)
  Receive Date: 20231110
  Receipt Date: 20231110
  Transmission Date: 20240110
  Serious: No
  Sender: FDA-Public Use
  Company Number: US-ELI_LILLY_AND_COMPANY-US202311005160

PATIENT
  Age: 76 Year
  Sex: Female

DRUGS (1)
  1. VERZENIO [Suspect]
     Active Substance: ABEMACICLIB
     Indication: Breast cancer female
     Dosage: 150 MG, BID
     Route: 048
     Dates: start: 20230823

REACTIONS (11)
  - General physical health deterioration [Unknown]
  - Abdominal discomfort [Unknown]
  - Vertigo [Unknown]
  - Quality of life decreased [Unknown]
  - Malaise [Unknown]
  - Pain [Unknown]
  - Depression [Unknown]
  - Behaviour disorder [Unknown]
  - Dizziness [Unknown]
  - Asthenia [Unknown]
  - Diarrhoea [Unknown]
